FAERS Safety Report 9803035 (Version 1)
Quarter: 2014Q1

REPORT INFORMATION
  Report Type: Spontaneous
  Country: US (occurrence: US)
  Receive Date: 20140108
  Receipt Date: 20140108
  Transmission Date: 20141002
  Serious: No
  Sender: FDA-Public Use
  Company Number: US-JNJFOC-20140101583

PATIENT
  Age: 58 Year
  Sex: Female
  Weight: 117.94 kg

DRUGS (7)
  1. DURAGESIC [Suspect]
     Indication: ROTATOR CUFF SYNDROME
     Route: 062
  2. DURAGESIC [Suspect]
     Indication: ARTHRALGIA
     Route: 062
  3. DURAGESIC [Suspect]
     Indication: BACK PAIN
     Route: 062
  4. NABILONE [Concomitant]
     Route: 065
  5. SAVELLA [Concomitant]
     Indication: FIBROMYALGIA
     Route: 065
  6. LASIX [Concomitant]
     Route: 065
  7. AMBIEN [Concomitant]
     Indication: SLEEP DISORDER
     Route: 065

REACTIONS (1)
  - Drug dose omission [Not Recovered/Not Resolved]
